FAERS Safety Report 9278406 (Version 1)
Quarter: 2013Q2

REPORT INFORMATION
  Report Type: Spontaneous
  Country: GB (occurrence: GB)
  Receive Date: 20130508
  Receipt Date: 20130508
  Transmission Date: 20140414
  Serious: Yes (Other)
  Sender: FDA-Public Use
  Company Number: GB-PFIZER INC-2005042695

PATIENT
  Age: 61 Year
  Sex: Female

DRUGS (1)
  1. IBUPROFEN [Suspect]
     Indication: MYALGIA
     Dosage: 400 MG TID
     Route: 048
     Dates: start: 20050204, end: 20050217

REACTIONS (2)
  - Polyuria [Recovered/Resolved]
  - Thirst [Recovered/Resolved]
